FAERS Safety Report 5149867-2 (Version None)
Quarter: 2006Q4

REPORT INFORMATION
  Report Type: 
  Country: None (occurrence: None)
  Receive Date: 20061108
  Receipt Date: 20061030
  Transmission Date: 20070319
  Serious: Yes (Death, Other)
  Sender: FDA-Public Use
  Company Number: 2006133958

PATIENT

DRUGS (2)
  1. BEXTRA [Suspect]
     Dosage: ORAL
     Route: 048
     Dates: start: 20030401
  2. VIOXX [Suspect]
     Dosage: ORAL
     Route: 048
     Dates: start: 20010401, end: 20030101

REACTIONS (1)
  - MYOCARDIAL INFARCTION [None]
